FAERS Safety Report 17318269 (Version 3)
Quarter: 2020Q1

REPORT INFORMATION
  Report Type: Report from Study
  Country: AU (occurrence: AU)
  Receive Date: 20200124
  Receipt Date: 20200327
  Transmission Date: 20200409
  Serious: Yes (Hospitalization)
  Sender: FDA-Public Use
  Company Number: AU-VERTEX PHARMACEUTICALS-2020-001095

PATIENT
  Age: 14 Year
  Sex: Female
  Weight: 73 kg

DRUGS (11)
  1. PULMOZYME [Concomitant]
     Active Substance: DORNASE ALFA
     Indication: CYSTIC FIBROSIS LUNG
     Dosage: 2.5 MG, BD
     Route: 055
     Dates: start: 2009
  2. PLACEBO [Suspect]
     Active Substance: UNSPECIFIED INGREDIENT
     Indication: CYSTIC FIBROSIS
     Dosage: UNK
     Route: 048
     Dates: start: 20191213
  3. CREON [Concomitant]
     Active Substance: PANCRELIPASE AMYLASE\PANCRELIPASE LIPASE\PANCRELIPASE PROTEASE
     Indication: PANCREATIC FAILURE
     Dosage: 10,000 PRN WITH FOOD
     Route: 048
     Dates: start: 2006
  4. VX-661/VX-770 [Suspect]
     Active Substance: IVACAFTOR\TEZACAFTOR
     Indication: CYSTIC FIBROSIS
     Dosage: VX-661,100MG QD/ VX-770,150 MG Q12H
     Route: 048
     Dates: start: 20191213
  5. VENTOLINE [SALBUTAMOL] [Concomitant]
     Active Substance: ALBUTEROL SULFATE
     Indication: CYSTIC FIBROSIS LUNG
     Dosage: 6 PUFFS, BD
     Route: 055
     Dates: start: 2005
  6. SALT [Concomitant]
     Active Substance: SODIUM CHLORIDE
     Dosage: 3 DOSAGE FORM, PRN
     Dates: start: 2008
  7. COLISTIN [Concomitant]
     Active Substance: COLISTIN
     Indication: BACTERIAL DISEASE CARRIER
     Dosage: 1000000 UNITS, BD
     Dates: start: 2005
  8. FLUTIFORM [Concomitant]
     Active Substance: FLUTICASONE PROPIONATE\FORMOTEROL FUMARATE
     Indication: CYSTIC FIBROSIS LUNG
     Dosage: 2 PUFFS, BD
     Route: 055
     Dates: start: 2017
  9. VITABDECK [Concomitant]
     Dosage: 3 DOSAGE FORM, QD
     Route: 048
     Dates: start: 2007
  10. AZITHROMYCIN ANHYDROUS. [Concomitant]
     Active Substance: AZITHROMYCIN ANHYDROUS
     Indication: CYSTIC FIBROSIS LUNG
     Dosage: 1 DOSAGE FORM, QD, THRICE A WEEK
     Route: 048
     Dates: start: 2010
  11. BRONCHITOL [Concomitant]
     Indication: CYSTIC FIBROSIS LUNG
     Dosage: 10 DOSAGE FORM, BD
     Route: 055
     Dates: start: 2014

REACTIONS (1)
  - Haemoptysis [Recovered/Resolved]

NARRATIVE: CASE EVENT DATE: 20200117
